FAERS Safety Report 4923761-1 (Version None)
Quarter: 2006Q1

REPORT INFORMATION
  Report Type: 
  Country: None (occurrence: None)
  Receive Date: 20060227
  Receipt Date: 20051013
  Transmission Date: 20060701
  Serious: Yes (Hospitalization)
  Sender: FDA-Public Use
  Company Number: PR-MERCK-0510USA07205

PATIENT
  Age: 71 Year
  Sex: Male

DRUGS (11)
  1. VIOXX [Suspect]
     Indication: BACK PAIN
     Route: 048
     Dates: start: 20020101, end: 20040101
  2. VIOXX [Suspect]
     Route: 048
     Dates: start: 20020101, end: 20040101
  3. VIOXX [Suspect]
     Indication: PAIN IN EXTREMITY
     Route: 048
     Dates: start: 20020101, end: 20040101
  4. VIOXX [Suspect]
     Route: 048
     Dates: start: 20020101, end: 20040101
  5. ATENOLOL [Concomitant]
     Route: 048
  6. FELODIPINE [Concomitant]
     Route: 048
  7. LORAZEPAM [Concomitant]
     Route: 048
  8. RABEPRAZOLE SODIUM [Concomitant]
     Route: 048
  9. RANITIDINE HYDROCHLORIDE [Concomitant]
     Route: 048
  10. SERTRALINE HYDROCHLORIDE [Concomitant]
     Route: 048
  11. SIMVASTATIN [Concomitant]
     Route: 048

REACTIONS (25)
  - ABDOMINAL PAIN [None]
  - ANGINA PECTORIS [None]
  - ARTERIOSCLEROSIS CORONARY ARTERY [None]
  - ASTHENIA [None]
  - BRONCHITIS ACUTE [None]
  - CHEST PAIN [None]
  - CORONARY ARTERY DISEASE [None]
  - DRUG INEFFECTIVE [None]
  - EMPHYSEMA [None]
  - GASTRITIS [None]
  - HAEMORRHAGE [None]
  - HERPES ZOSTER [None]
  - HYPERTENSION [None]
  - HYPERTRIGLYCERIDAEMIA [None]
  - HYPOAESTHESIA [None]
  - INJURY [None]
  - JOINT EFFUSION [None]
  - LIMB INJURY [None]
  - MENISCUS LESION [None]
  - MUSCULOSKELETAL STIFFNESS [None]
  - MYOCARDIAL INFARCTION [None]
  - PAIN IN EXTREMITY [None]
  - PALPITATIONS [None]
  - SYNOVIAL CYST [None]
  - VIRAL INFECTION [None]
